FAERS Safety Report 9102939 (Version 1)
Quarter: 2013Q1

REPORT INFORMATION
  Report Type: Spontaneous
  Country: CH (occurrence: CH)
  Receive Date: 20130218
  Receipt Date: 20130218
  Transmission Date: 20140127
  Serious: Yes (Other)
  Sender: FDA-Public Use
  Company Number: PHHY2013CH014712

PATIENT
  Age: 55 Year
  Sex: Male

DRUGS (3)
  1. GALVUS [Suspect]
     Indication: DIABETES MELLITUS
  2. METFORMIN [Suspect]
     Indication: DIABETES MELLITUS
     Dosage: UNK UKN, UNK
  3. METFORMIN [Suspect]
     Dosage: UNK UKN, UNK

REACTIONS (1)
  - Thrombocytopenia [Unknown]
